FAERS Safety Report 15954660 (Version 2)
Quarter: 2019Q1

REPORT INFORMATION
  Report Type: Spontaneous
  Country: US (occurrence: US)
  Receive Date: 20190213
  Receipt Date: 20190218
  Transmission Date: 20190417
  Serious: Yes (Hospitalization, Other)
  Sender: FDA-Public Use
  Company Number: PHEH2019US006235

PATIENT
  Age: 23 Year
  Sex: Female
  Weight: 57 kg

DRUGS (22)
  1. LANSOPRAZOLE. [Concomitant]
     Active Substance: LANSOPRAZOLE
     Indication: PRODUCT USED FOR UNKNOWN INDICATION
     Dosage: 30 MG, QD
     Route: 048
  2. OLANZAPINE. [Concomitant]
     Active Substance: OLANZAPINE
     Indication: PRODUCT USED FOR UNKNOWN INDICATION
     Dosage: 2.5 MG, QHS
     Route: 048
  3. SODIUM CHLORIDE. [Concomitant]
     Active Substance: SODIUM CHLORIDE
     Dosage: 2 DF, UNK (AS DIRECTED, BOTH NOSTRILS)
     Route: 045
  4. ISRADIPINE. [Concomitant]
     Active Substance: ISRADIPINE
     Indication: PRODUCT USED FOR UNKNOWN INDICATION
     Dosage: 1.4 MG, ONCE/SINGLE
     Route: 048
  5. ONDASETRON [Concomitant]
     Active Substance: ONDANSETRON
     Indication: PRODUCT USED FOR UNKNOWN INDICATION
     Dosage: 8 MG, Q6H
     Route: 042
  6. LORAZEPAM. [Concomitant]
     Active Substance: LORAZEPAM
     Indication: PRODUCT USED FOR UNKNOWN INDICATION
     Dosage: 0.5 MG, Q6H
     Route: 042
  7. LEVETIRACETAM. [Concomitant]
     Active Substance: LEVETIRACETAM
     Indication: PRODUCT USED FOR UNKNOWN INDICATION
     Dosage: 1000 MG, BID
     Route: 048
  8. ALLOPURINOL. [Concomitant]
     Active Substance: ALLOPURINOL
     Indication: PRODUCT USED FOR UNKNOWN INDICATION
     Dosage: 200 MG, Q8H
     Route: 048
  9. HYDROXYZINE [Concomitant]
     Active Substance: HYDROXYZINE HYDROCHLORIDE
     Indication: PRODUCT USED FOR UNKNOWN INDICATION
     Dosage: 50 MG, Q6H
     Route: 042
  10. POTASSIUM CHLORIDE. [Concomitant]
     Active Substance: POTASSIUM CHLORIDE
     Indication: PRODUCT USED FOR UNKNOWN INDICATION
     Dosage: 40 MEQ, UNK
     Route: 065
  11. CEFEPIME [Concomitant]
     Active Substance: CEFEPIME HYDROCHLORIDE
     Indication: PRODUCT USED FOR UNKNOWN INDICATION
     Dosage: 2000 MG, Q8H
     Route: 042
  12. PROCHLORPERAZINE. [Concomitant]
     Active Substance: PROCHLORPERAZINE
     Indication: PRODUCT USED FOR UNKNOWN INDICATION
     Dosage: 5 MG, Q6H
     Route: 048
  13. KYMRIAH [Suspect]
     Active Substance: TISAGENLECLEUCEL
     Indication: ACUTE MYELOID LEUKAEMIA REFRACTORY
     Dosage: 17 ML, ONCE/SINGLE
     Route: 042
     Dates: start: 20190129, end: 20190129
  14. SODIUM CHLORIDE. [Concomitant]
     Active Substance: SODIUM CHLORIDE
     Indication: PRODUCT USED FOR UNKNOWN INDICATION
     Dosage: 2 ML, UNK (AS DIRECTED)
     Route: 042
  15. FUROSEMIDE. [Concomitant]
     Active Substance: FUROSEMIDE
     Indication: PRODUCT USED FOR UNKNOWN INDICATION
     Dosage: 20 MG, ONCE/SINGLE
     Route: 042
  16. MICAFUNGIN. [Concomitant]
     Active Substance: MICAFUNGIN SODIUM
     Indication: PRODUCT USED FOR UNKNOWN INDICATION
     Dosage: 150 MG, Q24H
     Route: 042
  17. ACETAMINOPHEN. [Concomitant]
     Active Substance: ACETAMINOPHEN
     Indication: PRODUCT USED FOR UNKNOWN INDICATION
     Dosage: 650 MG, Q4H
     Route: 048
  18. POSACONAZOLE [Concomitant]
     Active Substance: POSACONAZOLE
     Indication: PRODUCT USED FOR UNKNOWN INDICATION
     Dosage: 300 MG, QD
     Route: 048
  19. HYDROCORTISONE. [Concomitant]
     Active Substance: HYDROCORTISONE
     Indication: PRODUCT USED FOR UNKNOWN INDICATION
     Dosage: 15 MG, TID
     Route: 048
  20. VANCOMYCIN [Concomitant]
     Active Substance: VANCOMYCIN
     Indication: PRODUCT USED FOR UNKNOWN INDICATION
     Dosage: 1000 MG, Q8H
     Route: 042
  21. ACYCLOVIR. [Concomitant]
     Active Substance: ACYCLOVIR
     Indication: PRODUCT USED FOR UNKNOWN INDICATION
     Dosage: 400 MG, BID
     Route: 048
  22. URSODIOL. [Concomitant]
     Active Substance: URSODIOL
     Indication: PRODUCT USED FOR UNKNOWN INDICATION
     Dosage: 300 MG, TID
     Route: 048

REACTIONS (42)
  - Hypoperfusion [Recovered/Resolved]
  - Haematocrit decreased [Unknown]
  - Albumin globulin ratio decreased [Unknown]
  - Blood calcium decreased [Unknown]
  - Thyroxine free increased [Unknown]
  - Monocyte count decreased [Unknown]
  - Aspartate aminotransferase decreased [Unknown]
  - Blood alkaline phosphatase increased [Unknown]
  - C-reactive protein increased [Recovering/Resolving]
  - Peripheral coldness [Unknown]
  - Blood potassium decreased [Unknown]
  - Alanine aminotransferase decreased [Unknown]
  - Blood magnesium decreased [Unknown]
  - Infection [Unknown]
  - Pallor [Unknown]
  - Red blood cell count decreased [Unknown]
  - Blood albumin decreased [Unknown]
  - Blood fibrinogen increased [Unknown]
  - Blood urea nitrogen/creatinine ratio increased [Unknown]
  - Dyspnoea [Unknown]
  - Activated partial thromboplastin time prolonged [Unknown]
  - Serum ferritin increased [Recovering/Resolving]
  - Fluid overload [Unknown]
  - Protein total increased [Unknown]
  - Haemoglobin decreased [Unknown]
  - Lymphocyte count decreased [Unknown]
  - Pyrexia [Recovering/Resolving]
  - Coagulopathy [Not Recovered/Not Resolved]
  - Carbon dioxide increased [Unknown]
  - Splenomegaly [Unknown]
  - White blood cell count decreased [Unknown]
  - Platelet count decreased [Unknown]
  - Neutrophil count decreased [Unknown]
  - Neutropenia [Not Recovered/Not Resolved]
  - Globulins increased [Unknown]
  - Blood lactate dehydrogenase increased [Unknown]
  - Cytokine release syndrome [Recovering/Resolving]
  - Hypoxia [Recovered/Resolved]
  - Blood glucose increased [Unknown]
  - Blood thyroid stimulating hormone decreased [Unknown]
  - Blood uric acid decreased [Unknown]
  - Tachycardia [Unknown]

NARRATIVE: CASE EVENT DATE: 20190129
